FAERS Safety Report 14829769 (Version 5)
Quarter: 2018Q3

REPORT INFORMATION
  Report Type: Spontaneous
  Country: DE (occurrence: DE)
  Receive Date: 20180430
  Receipt Date: 20180810
  Transmission Date: 20181010
  Serious: Yes (Hospitalization, Other)
  Sender: FDA-Public Use
  Company Number: DE-PFIZER INC-2018173045

PATIENT
  Sex: Male

DRUGS (32)
  1. SULFAMETHOXAZOLE AND TRIMETHOPRIM [Concomitant]
     Active Substance: SULFAMETHOXAZOLE\TRIMETHOPRIM
     Dosage: 960 MG,BIW
     Route: 048
     Dates: start: 201505
  2. CALCIUM FOLINATE [Suspect]
     Active Substance: LEUCOVORIN CALCIUM
     Indication: B-CELL LYMPHOMA
     Dosage: 5 MG, 1X/DAY (FOR 2 WEEKS)
     Route: 048
     Dates: start: 201505, end: 201505
  3. DOXORUBICIN [Suspect]
     Active Substance: DOXORUBICIN
     Dosage: LAST DOSE PRIOR TO SAE: 10/JUL/2015
     Route: 042
     Dates: start: 20150710, end: 20150710
  4. CYCLOPHOSPHAMIDE. [Suspect]
     Active Substance: CYCLOPHOSPHAMIDE
     Dosage: LAST DOSE PRIOR TO SAE: 10/JUL/2015
     Route: 042
     Dates: start: 20150710
  5. RAMIPRIL. [Concomitant]
     Active Substance: RAMIPRIL
     Indication: HYPERTENSION
     Dosage: 5 MG, 2X/DAY
     Route: 048
  6. METAMIZOL NATRIUM [Concomitant]
     Indication: PYREXIA
  7. SULFAMETHOXAZOLE AND TRIMETHOPRIM [Concomitant]
     Active Substance: SULFAMETHOXAZOLE\TRIMETHOPRIM
     Dosage: 1920 MG, WEEKLY
     Route: 048
     Dates: start: 201505
  8. TAMSULOSIN [Concomitant]
     Active Substance: TAMSULOSIN
     Indication: BENIGN PROSTATIC HYPERPLASIA
     Dosage: 4 MG, 1X/DAY
     Route: 048
  9. CALCIUM FOLINATE [Suspect]
     Active Substance: LEUCOVORIN CALCIUM
     Dosage: 5 MG, 1X/DAY 5 MG, 1X/DAY (FOR 2 WEEKS)
     Route: 048
     Dates: start: 20150620, end: 20150620
  10. RITUXIMAB. [Suspect]
     Active Substance: RITUXIMAB
     Dosage: MOST RECENT CYCLE NUMBER 4; MOST RECENT DOSE PRIOR TO SAE: 09/JUL/2015
     Route: 042
     Dates: start: 20150709
  11. CYCLOPHOSPHAMIDE. [Suspect]
     Active Substance: CYCLOPHOSPHAMIDE
     Indication: B-CELL LYMPHOMA
     Dosage: MOST RECENT DOSE PRIOR TO SAE: 18/JUN/2015 (1 IN 1 D)
     Route: 042
     Dates: start: 20150618, end: 20150618
  12. AMLODIPINE [Concomitant]
     Active Substance: AMLODIPINE BESYLATE
     Indication: AORTIC VALVE INCOMPETENCE
     Dosage: 5 MG, 1X/DAY
     Route: 048
  13. RITUXIMAB. [Suspect]
     Active Substance: RITUXIMAB
     Dosage: LAST DOSE PRIOR TO SAE? 15/SEP/2015 (1 IN 1 D)
     Route: 042
     Dates: start: 20150915, end: 20150915
  14. DOXORUBICIN [Suspect]
     Active Substance: DOXORUBICIN
     Dosage: LAST DOSE PRIOR TO SAE 13/JUL/2015 (1 IN 1 D)
     Route: 042
     Dates: start: 20150713
  15. SULFAMETHOXAZOLE AND TRIMETHOPRIM [Concomitant]
     Active Substance: SULFAMETHOXAZOLE\TRIMETHOPRIM
     Dosage: 96 MG,BIW
     Route: 048
     Dates: start: 201505
  16. PEGFILGRASTIM [Suspect]
     Active Substance: PEGFILGRASTIM
     Dosage: 6 MG, 1X/DAY
     Route: 058
     Dates: start: 20150711, end: 20150711
  17. PEGFILGRASTIM [Suspect]
     Active Substance: PEGFILGRASTIM
     Dosage: 6 MG, UNK
     Route: 058
     Dates: start: 20150712, end: 20150712
  18. VINCRISTINE [Suspect]
     Active Substance: VINCRISTINE
     Indication: B-CELL LYMPHOMA
     Dosage: 1 DF, 1X/DAY LAST DOSE PRIOR TO SAE:18/JUN/2015 (1 IN 1 D)
     Route: 042
     Dates: start: 20150618, end: 20150618
  19. PREDNISOLONE. [Suspect]
     Active Substance: PREDNISOLONE
     Dosage: MOST RECENT DOSE PRIOR TO SAE: 10/JUL/2015, LAST DOSE PRIOR TO SAE: 13/JUL/2015
     Route: 048
     Dates: start: 20150709, end: 20150713
  20. CYCLOPHOSPHAMIDE. [Suspect]
     Active Substance: CYCLOPHOSPHAMIDE
     Dosage: LAST DOSE PRIOR TO SAE: 13/JUL/2015 (1 IN 1 D)
     Route: 042
     Dates: start: 20150713
  21. COLECALCIFEROL [Concomitant]
     Active Substance: CHOLECALCIFEROL
     Indication: VITAMIN D DEFICIENCY
     Dosage: 20000 IU, WEEKLY
     Route: 048
     Dates: start: 201505
  22. METAMIZOL NATRIUM [Concomitant]
     Indication: PAIN
     Dosage: 1 G, AS NEEDED
     Route: 042
     Dates: start: 20150623, end: 20150624
  23. BISACODYL. [Concomitant]
     Active Substance: BISACODYL
     Indication: CONSTIPATION
     Dosage: 20 GTT, 1X/DAY
     Route: 048
     Dates: start: 20150701, end: 20150702
  24. FOLIC ACID. [Concomitant]
     Active Substance: FOLIC ACID
     Indication: PROPHYLAXIS
     Dosage: 5 MG, 2X/WEEK
     Route: 048
     Dates: start: 201505
  25. POLYETHYLENE GLYCOL [Concomitant]
     Active Substance: POLYETHYLENE GLYCOLS
     Indication: CONSTIPATION
     Dosage: 1 BAG 1?0?0 FOR 3 DAYS
     Route: 048
     Dates: start: 20150701, end: 20150703
  26. PEGFILGRASTIM [Suspect]
     Active Substance: PEGFILGRASTIM
     Indication: B-CELL LYMPHOMA
     Dosage: 6 MG, 1X/DAY
     Route: 058
     Dates: start: 20150621, end: 20150621
  27. RITUXIMAB. [Suspect]
     Active Substance: RITUXIMAB
     Dosage: 776 MG, UNK
     Route: 042
     Dates: start: 20150709, end: 20150709
  28. VINCRISTINE [Suspect]
     Active Substance: VINCRISTINE
     Dosage: 1 DF, 1X/DAY LAST DOSE PRIOR TO SAE:10/JUL/2015 (1 IN 1 D)
     Route: 042
     Dates: start: 20150710, end: 20150710
  29. SULFAMETHOXAZOLE AND TRIMETHOPRIM [Concomitant]
     Active Substance: SULFAMETHOXAZOLE\TRIMETHOPRIM
     Indication: PROPHYLAXIS
     Dosage: UNK UNK, 2X/WEEK (REPORTED AS 960 MG OR 96 MG)
     Route: 048
     Dates: start: 201505
  30. DOXORUBICIN [Suspect]
     Active Substance: DOXORUBICIN
     Indication: B-CELL LYMPHOMA
     Dosage: 1 DF, 1X/DAY (LAST DOSE PRIOR TO SAE:18/JUN/2015 (1 IN 1 D))
     Route: 042
     Dates: start: 20150618, end: 20150618
  31. RITUXIMAB. [Suspect]
     Active Substance: RITUXIMAB
     Indication: B-CELL LYMPHOMA
     Dosage: MOST RECENT CYCLE: 3; MOST RECENT DOSE PRIOR TO SAE: 17/JUN/2015 (L IN 1 D)
     Route: 042
     Dates: start: 20150617, end: 20150617
  32. PREDNISOLONE. [Suspect]
     Active Substance: PREDNISOLONE
     Indication: B-CELL LYMPHOMA
     Dosage: FOR 6 DAYS MOST RECENT DOSE PRIOR TO SAE: 18/JUN/2015 (1 IN 1 D)
     Route: 048
     Dates: start: 20150617, end: 20150622

REACTIONS (3)
  - Urinary tract infection [Recovered/Resolved]
  - Urinary tract infection [Recovered/Resolved]
  - Urosepsis [Recovered/Resolved]

NARRATIVE: CASE EVENT DATE: 20150623
